FAERS Safety Report 12193460 (Version 1)
Quarter: 2016Q1

REPORT INFORMATION
  Report Type: Spontaneous
  Country: US (occurrence: US)
  Receive Date: 20160320
  Receipt Date: 20160320
  Transmission Date: 20160526
  Serious: Yes (Other)
  Sender: FDA-Public Use
  Company Number: US-B.I. PHARMACEUTICALS,INC./RIDGEFIELD-2016-BI-16220BP

PATIENT
  Age: 68 Year
  Sex: Male

DRUGS (1)
  1. AGGRENOX [Suspect]
     Active Substance: ASPIRIN\DIPYRIDAMOLE
     Indication: TRANSIENT ISCHAEMIC ATTACK
     Dosage: DOSE PER APPLICATION:25 MG / 200 MG AND DAILY DOSE: 50MG/400MG
     Route: 048
     Dates: start: 1999, end: 201509

REACTIONS (10)
  - Fatigue [Not Recovered/Not Resolved]
  - Dyspnoea [Not Recovered/Not Resolved]
  - Colitis ulcerative [Recovered/Resolved]
  - Spinal column stenosis [Recovered/Resolved]
  - Haemorrhage [Not Recovered/Not Resolved]
  - Lower limb fracture [Recovered/Resolved]
  - Prostatic disorder [Recovered/Resolved]
  - Atrioventricular block [Recovered/Resolved]
  - Non-Hodgkin^s lymphoma [Recovered/Resolved]
  - Osteoarthritis [Not Recovered/Not Resolved]

NARRATIVE: CASE EVENT DATE: 2001
